FAERS Safety Report 23548435 (Version 4)
Quarter: 2024Q2

REPORT INFORMATION
  Report Type: Spontaneous
  Country: US (occurrence: US)
  Receive Date: 20240221
  Receipt Date: 20240509
  Transmission Date: 20240717
  Serious: No
  Sender: FDA-Public Use
  Company Number: US-BRISTOL-MYERS SQUIBB COMPANY-2023-189146

PATIENT
  Age: 68 Year
  Sex: Female

DRUGS (2)
  1. ORENCIA [Suspect]
     Active Substance: ABATACEPT
     Indication: Rheumatoid arthritis
     Dosage: BATCH NUM: ACM5688  EXP DATE: 31-AUG-2025
     Route: 058
     Dates: start: 202311
  2. METHOTREXATE [Concomitant]
     Active Substance: METHOTREXATE
     Indication: Product used for unknown indication

REACTIONS (7)
  - Device failure [Unknown]
  - Pyrexia [Recovered/Resolved]
  - Viral infection [Recovered/Resolved]
  - Rheumatoid arthritis [Recovered/Resolved]
  - Malaise [Unknown]
  - Secretion discharge [Unknown]
  - Cough [Unknown]
